FAERS Safety Report 9364959 (Version 1)
Quarter: 2013Q2

REPORT INFORMATION
  Report Type: Spontaneous
  Country: US (occurrence: US)
  Receive Date: 20130624
  Receipt Date: 20130624
  Transmission Date: 20140414
  Serious: No
  Sender: FDA-Public Use
  Company Number: US-US-EMD SERONO, INC.-7130620

PATIENT
  Sex: Female

DRUGS (5)
  1. REBIF [Suspect]
     Indication: MULTIPLE SCLEROSIS
     Route: 058
     Dates: end: 201111
  2. REBIF [Suspect]
     Dates: start: 20120503
  3. TOPROL XL [Concomitant]
     Indication: BLOOD PRESSURE ABNORMAL
  4. NORTRIPTYLINE [Concomitant]
     Indication: MIGRAINE PROPHYLAXIS
  5. HYDROCHLOROTHIAZIDE [Concomitant]
     Indication: BLOOD PRESSURE ABNORMAL

REACTIONS (2)
  - Benign breast neoplasm [Recovered/Resolved]
  - Hepatic enzyme abnormal [Unknown]
